FAERS Safety Report 4614822-5 (Version None)
Quarter: 2005Q1

REPORT INFORMATION
  Report Type: 
  Country: None (occurrence: None)
  Receive Date: 20050322
  Receipt Date: 20050127
  Transmission Date: 20050727
  Serious: Yes (Hospitalization)
  Sender: FDA-Public Use
  Company Number: US-BRISTOL-MYERS SQUIBB COMPANY-12860284

PATIENT
  Age: 65 Year
  Sex: Female

DRUGS (6)
  1. ABILIFY [Suspect]
     Indication: SCHIZOPHRENIA
     Route: 048
     Dates: start: 20041201, end: 20050127
  2. GLUCOTROL [Concomitant]
  3. OS-CAL [Concomitant]
  4. CLONAZEPAM [Concomitant]
  5. TRAZODONE HCL [Concomitant]
  6. MIACALCIN [Concomitant]

REACTIONS (3)
  - BODY TEMPERATURE DECREASED [None]
  - DROOLING [None]
  - DYSARTHRIA [None]
